FAERS Safety Report 9312834 (Version 3)
Quarter: 2013Q3

REPORT INFORMATION
  Report Type: Spontaneous
  Country: US (occurrence: US)
  Receive Date: 20130528
  Receipt Date: 20130801
  Transmission Date: 20140515
  Serious: No
  Sender: FDA-Public Use
  Company Number: US-009507513-1305USA015099

PATIENT
  Age: 57 Year
  Sex: Male
  Weight: 101.59 kg

DRUGS (10)
  1. VICTRELIS [Suspect]
     Dosage: 800 MG (4-200 MG CAPSULES) BY MOUTH 3 TIMES A DAY WITH FOOD (DOSES SPACED 7-9 HRS APART)
     Route: 048
  2. PEGASYS [Suspect]
     Dosage: 180 MCG/M
  3. RIBAPAK [Suspect]
     Dosage: 1200/DAY
  4. COZAAR [Concomitant]
     Dosage: 100 MG
     Route: 048
  5. FERROUS SULFATE [Concomitant]
  6. PROCRIT [Concomitant]
     Dosage: 10000/ML
  7. ROBITUSSIN [Concomitant]
     Dosage: 10 MG
  8. CLARITIN [Concomitant]
     Dosage: 10 MG
     Route: 048
  9. TUSSIN COUGH AND COLD [Concomitant]
     Dosage: 100/5 ML
  10. ZOLPIDEM TARTRATE [Concomitant]
     Dosage: 100 MG

REACTIONS (11)
  - Tooth fracture [Unknown]
  - Mobility decreased [Unknown]
  - Oedema peripheral [Unknown]
  - Cough [Unknown]
  - Musculoskeletal chest pain [Unknown]
  - Anaemia [Unknown]
  - Abdominal pain [Unknown]
  - Nausea [Unknown]
  - Decreased appetite [Unknown]
  - Anaemia [Unknown]
  - Poor quality sleep [Unknown]
